FAERS Safety Report 8546836 (Version 2)
Quarter: 2013Q2

REPORT INFORMATION
  Report Type: Spontaneous
  Country: US (occurrence: None)
  Receive Date: 20120315
  Receipt Date: 20120703
  Transmission Date: 20140414
  Serious: Yes (Other)
  Sender: FDA-Public Use
  Company Number: PHHY2011US12139

PATIENT
  Age: 47 Year
  Sex: Female

DRUGS (1)
  1. GILENYA [Suspect]
     Indication: MULTIPLE SCLEROSIS
     Route: 048
     Dates: start: 20110119

REACTIONS (8)
  - TEMPERATURE INTOLERANCE [None]
  - WEIGHT INCREASED [None]
  - FATIGUE [None]
  - HEADACHE [None]
  - Abdominal discomfort [None]
  - Drug intolerance [None]
  - Abdominal pain upper [None]
  - Nausea [None]
